FAERS Safety Report 10288393 (Version 1)
Quarter: 2014Q3

REPORT INFORMATION
  Report Type: Spontaneous
  Country: IT (occurrence: IT)
  Receive Date: 20140709
  Receipt Date: 20140709
  Transmission Date: 20150326
  Serious: Yes (Other)
  Sender: FDA-Public Use
  Company Number: IT-ASTRAZENECA-2014SE48243

PATIENT
  Age: 23128 Day
  Sex: Male

DRUGS (3)
  1. CARDIOASPIRIN [Concomitant]
     Active Substance: ASPIRIN
     Dosage: 100 MILLIGRAMS TABLETS
     Route: 048
  2. TENORMIN [Suspect]
     Active Substance: ATENOLOL
     Route: 048
     Dates: start: 20140101, end: 20140521
  3. CRESTOR [Concomitant]
     Active Substance: ROSUVASTATIN CALCIUM
     Dosage: 10 MILLIGRAMS TABLETS

REACTIONS (3)
  - Hyperkalaemia [Recovering/Resolving]
  - Presyncope [Recovering/Resolving]
  - Sinus bradycardia [Unknown]

NARRATIVE: CASE EVENT DATE: 20140521
